FAERS Safety Report 12222182 (Version 1)
Quarter: 2016Q1

REPORT INFORMATION
  Report Type: Spontaneous
  Country: US (occurrence: US)
  Receive Date: 20160330
  Receipt Date: 20160330
  Transmission Date: 20160526
  Serious: No
  Sender: FDA-Public Use
  Company Number: US-MYLANLABS-2015M1029223

PATIENT
  Sex: Female
  Weight: 73.47 kg

DRUGS (1)
  1. FENTANYL. [Suspect]
     Active Substance: FENTANYL
     Indication: PAIN
     Dosage: UNK
     Dates: start: 2005, end: 2005

REACTIONS (3)
  - Application site reaction [Recovered/Resolved]
  - Hypersensitivity [Recovered/Resolved]
  - Application site burn [Recovered/Resolved]

NARRATIVE: CASE EVENT DATE: 2005
